FAERS Safety Report 5334456-7 (Version None)
Quarter: 2007Q1

REPORT INFORMATION
  Report Type: 
  Country: None (occurrence: None)
  Receive Date: 20070306
  Receipt Date: 20051220
  Transmission Date: 20070707
  Serious: Yes (Hospitalization)
  Sender: FDA-Public Use
  Company Number: A03200504368

PATIENT
  Age: 78 Year
  Sex: Female
  Weight: 81.63 kg

DRUGS (7)
  1. PLAVIX [Suspect]
     Indication: ANGIOPLASTY
     Dosage: 75 MG QD - ORAL
     Route: 048
     Dates: start: 20040101, end: 20051214
  2. PLAVIX [Suspect]
     Indication: CORONARY ARTERY OCCLUSION
     Dosage: 75 MG QD - ORAL
     Route: 048
     Dates: start: 20040101, end: 20051214
  3. ACETYLSALICYLIC ACID SRT [Concomitant]
  4. HYDROCHLOROTHIAZIDE [Concomitant]
  5. METOPROLOL SUCCINATE [Concomitant]
  6. DILTIAZEM HYDROCHLORIDE [Concomitant]
  7. POTASSIUM ACETATE [Concomitant]

REACTIONS (5)
  - DYSPNOEA [None]
  - FAECES DISCOLOURED [None]
  - HAEMOGLOBIN DECREASED [None]
  - OCCULT BLOOD POSITIVE [None]
  - PYREXIA [None]
